FAERS Safety Report 10818392 (Version 2)
Quarter: 2015Q1

REPORT INFORMATION
  Report Type: Spontaneous
  Country: CA (occurrence: CA)
  Receive Date: 20150218
  Receipt Date: 20150227
  Transmission Date: 20150721
  Serious: Yes (Hospitalization)
  Sender: FDA-Public Use
  Company Number: CA-GSKJP-KK201405705GSK1550188SC003

PATIENT
  Sex: Female
  Weight: 68 kg

DRUGS (4)
  1. CHLOROQUINE [Concomitant]
     Active Substance: CHLOROQUINE\CHLOROQUINE PHOSPHATE
  2. BENLYSTA [Suspect]
     Active Substance: BELIMUMAB
     Dosage: EVERY 2 WEEKS FOR THE FIRST 3 INFUSIONS, THAN EVERY 4 WEEKS
     Route: 042
     Dates: start: 20120301
  3. BENLYSTA [Suspect]
     Active Substance: BELIMUMAB
     Indication: SYSTEMIC LUPUS ERYTHEMATOSUS
     Dosage: EVERY 2 WEEKS FOR THE FIRST 3 INFUSIONS, THAN EVERY 4 WEEKS
     Route: 042
     Dates: start: 20120301
  4. METHOTREXATE [Concomitant]
     Active Substance: METHOTREXATE

REACTIONS (5)
  - Adverse event [Recovered/Resolved]
  - Weight increased [Unknown]
  - Wound [Unknown]
  - Weight decreased [Unknown]
  - Underdose [Unknown]
